FAERS Safety Report 7543301-0 (Version None)
Quarter: 2011Q2

REPORT INFORMATION
  Report Type: 
  Country: None (occurrence: None)
  Receive Date: 20110525
  Receipt Date: 20110517
  Transmission Date: 20111010
  Serious: Yes (Other)
  Sender: FDA-Public Use
  Company Number: 11-018

PATIENT
  Sex: Female

DRUGS (7)
  1. EASTERN 10 TREE MIX [Suspect]
     Indication: IMMUNE SYSTEM DISORDER
     Dosage: 1:20 W/V
     Dates: start: 20110204, end: 20110517
  2. GS 3 WEED MIX [Suspect]
     Indication: IMMUNE SYSTEM DISORDER
     Dosage: 1:10 W/V
     Dates: start: 20110204, end: 20110517
  3. GS TOS GRASS MIX [Suspect]
     Indication: IMMUNE SYSTEM DISORDER
     Dosage: 100,000 BAU
     Dates: start: 20110204, end: 20110517
  4. RAGWEED MIX [Suspect]
     Indication: IMMUNE SYSTEM DISORDER
     Dosage: 1:20 W/V
     Dates: start: 20110204, end: 20110517
  5. MITE D. PTERONYSSINUS [Suspect]
     Indication: IMMUNE SYSTEM DISORDER
     Dosage: 10,000 BAU
     Dates: start: 20110204, end: 20110517
  6. MITE D. FARINEA [Suspect]
     Indication: IMMUNE SYSTEM DISORDER
     Dosage: 10,000 BAU
     Dates: start: 20110204, end: 20110517
  7. PLANTAIN/SORREL MIX [Suspect]
     Indication: IMMUNE SYSTEM DISORDER
     Dosage: 1:10 W/V
     Dates: start: 20110204, end: 20110517

REACTIONS (1)
  - INJECTION SITE DISCOLOURATION [None]
